FAERS Safety Report 17563160 (Version 1)
Quarter: 2020Q1

REPORT INFORMATION
  Report Type: Spontaneous
  Country: US (occurrence: US)
  Receive Date: 20200312
  Receipt Date: 20200312
  Transmission Date: 20200409
  Serious: Yes (Life-Threatening, Hospitalization)
  Sender: FDA-Public Use
  Company Number: None

PATIENT
  Age: 58 Year
  Sex: Male
  Weight: 98 kg

DRUGS (1)
  1. LISINOPRIL (LISINOPRIL 40MG TAB [Suspect]
     Active Substance: LISINOPRIL
     Route: 048
     Dates: start: 20170131, end: 20190708

REACTIONS (1)
  - Angioedema [None]

NARRATIVE: CASE EVENT DATE: 20190708
